FAERS Safety Report 6433443-5 (Version None)
Quarter: 2009Q4

REPORT INFORMATION
  Report Type: 
  Country: None (occurrence: None)
  Receive Date: 20091106
  Receipt Date: 20091106
  Transmission Date: 20100525
  Serious: Yes (Life-Threatening, Hospitalization)
  Sender: FDA-Public Use
  Company Number: None

PATIENT
  Sex: Female

DRUGS (2)
  1. RALOXIFENE HCL [Suspect]
     Indication: BREAST CANCER
     Dosage: 60 MG DAILY PO
     Route: 048
     Dates: start: 20030904, end: 20060501
  2. TAMOXIFEN CITRATE [Suspect]
     Indication: PROPHYLAXIS
     Dosage: 20 MG DAILY PO
     Route: 048
     Dates: start: 20030904, end: 20060501

REACTIONS (11)
  - ACUTE MYELOID LEUKAEMIA [None]
  - CHILLS [None]
  - DISEASE PROGRESSION [None]
  - ENDOMETRIAL HYPERTROPHY [None]
  - HEADACHE [None]
  - HYPOTENSION [None]
  - MYALGIA [None]
  - MYELODYSPLASTIC SYNDROME [None]
  - NECK PAIN [None]
  - PANCYTOPENIA [None]
  - STAPHYLOCOCCAL BACTERAEMIA [None]
